FAERS Safety Report 8261839-8 (Version None)
Quarter: 2012Q2

REPORT INFORMATION
  Report Type: 
  Country: None (occurrence: None)
  Receive Date: 20120405
  Receipt Date: 20120403
  Transmission Date: 20120825
  Serious: No
  Sender: FDA-Public Use
  Company Number: US-BAYER-2012-032889

PATIENT

DRUGS (2)
  1. ALEVE (CAPLET) [Suspect]
     Indication: SINUS HEADACHE
     Dosage: 5 DF, ONCE
     Route: 048
  2. CLARITIN-D [Concomitant]
     Indication: SINUS HEADACHE

REACTIONS (1)
  - DRUG INEFFECTIVE [None]
